FAERS Safety Report 9012851 (Version 2)
Quarter: 2013Q1

REPORT INFORMATION
  Report Type: Spontaneous
  Country: DE (occurrence: DE)
  Receive Date: 20130114
  Receipt Date: 20130125
  Transmission Date: 20140127
  Serious: Yes (Hospitalization)
  Sender: FDA-Public Use
  Company Number: PHHY2012DE124010

PATIENT
  Sex: Male

DRUGS (3)
  1. SANDOSTATIN LAR [Suspect]
     Indication: ACROMEGALY
     Dosage: 30 MG, MONTHLY
     Route: 030
     Dates: start: 2001
  2. L-THYROXIN [Concomitant]
     Dosage: 100 UG, QD
     Route: 048
     Dates: start: 201204
  3. RAMIPRIL [Concomitant]
     Dosage: 2.5 MG, QD
     Route: 048
     Dates: start: 201108

REACTIONS (1)
  - Inguinal hernia [Recovered/Resolved]
